FAERS Safety Report 6872794-7 (Version None)
Quarter: 2010Q3

REPORT INFORMATION
  Report Type: 
  Country: None (occurrence: None)
  Receive Date: 20100723
  Receipt Date: 20100714
  Transmission Date: 20110219
  Serious: Yes (Death)
  Sender: FDA-Public Use
  Company Number: IT-GENENTECH-304269

PATIENT
  Sex: Female

DRUGS (1)
  1. MABTHERA [Suspect]
     Indication: THROMBOTIC THROMBOCYTOPENIC PURPURA
     Dosage: UNK
     Route: 065

REACTIONS (5)
  - BONE MARROW FAILURE [None]
  - CEREBRAL HAEMORRHAGE [None]
  - CYTOMEGALOVIRUS INFECTION [None]
  - GASTRITIS HAEMORRHAGIC [None]
  - PNEUMONIA [None]
